FAERS Safety Report 16021015 (Version 1)
Quarter: 2019Q2

REPORT INFORMATION
  Report Type: Spontaneous
  Country: US (occurrence: US)
  Receive Date: 20190228
  Receipt Date: 20190228
  Transmission Date: 20190711
  Serious: Yes (Other)
  Sender: FDA-Public Use
  Company Number: None

PATIENT
  Age: 63 Year
  Sex: Female
  Weight: 80.1 kg

DRUGS (9)
  1. BUPRENORPHINE. [Suspect]
     Active Substance: BUPRENORPHINE
     Indication: BACK PAIN
     Dosage: ?          QUANTITY:1 TABLET(S);?
     Route: 060
  2. BUPRENORPHINE. [Concomitant]
     Active Substance: BUPRENORPHINE
  3. ALDACTONE [Concomitant]
     Active Substance: SPIRONOLACTONE
  4. TRAMADOL. [Concomitant]
     Active Substance: TRAMADOL
  5. LOPRESSOR [Concomitant]
     Active Substance: METOPROLOL TARTRATE
  6. BREO ELLIPTA [Concomitant]
     Active Substance: FLUTICASONE FUROATE\VILANTEROL TRIFENATATE
  7. BUPRENORPHINE. [Suspect]
     Active Substance: BUPRENORPHINE
     Indication: MUSCLE SPASMS
     Dosage: ?          QUANTITY:1 TABLET(S);?
     Route: 060
  8. LISINIPRIL [Concomitant]
     Active Substance: LISINOPRIL
  9. MOTRIN [Concomitant]
     Active Substance: IBUPROFEN

REACTIONS (8)
  - Blood pressure diastolic increased [None]
  - Rash erythematous [None]
  - Tremor [None]
  - Heart rate increased [None]
  - Dry mouth [None]
  - Hypertension [None]
  - Headache [None]
  - Pneumonia [None]

NARRATIVE: CASE EVENT DATE: 20190213
